FAERS Safety Report 12411677 (Version 1)
Quarter: 2016Q2

REPORT INFORMATION
  Report Type: Spontaneous
  Country: TW (occurrence: TW)
  Receive Date: 20160527
  Receipt Date: 20160527
  Transmission Date: 20160815
  Serious: Yes (Life-Threatening, Hospitalization)
  Sender: FDA-Public Use
  Company Number: TW-MYLANLABS-2016M1021674

PATIENT

DRUGS (5)
  1. TRANEXAMIC ACID. [Suspect]
     Active Substance: TRANEXAMIC ACID
     Indication: HAEMORRHAGE PROPHYLAXIS
     Dosage: 500 MG
     Route: 040
  2. THIAMYLAL SODIUM [Concomitant]
     Active Substance: THIAMYLAL SODIUM
     Dosage: 100 MIROG
     Route: 042
  3. CISATRACURIUM BESILATE [Concomitant]
     Active Substance: CISATRACURIUM BESYLATE
     Dosage: 100 MIROG
     Route: 042
  4. FENTANYL. [Concomitant]
     Active Substance: FENTANYL
     Dosage: 100 MIROG
     Route: 042
  5. SEVOFLURANE. [Concomitant]
     Active Substance: SEVOFLURANE
     Dosage: 2.5 %
     Route: 065

REACTIONS (3)
  - Pulmonary oedema [Recovered/Resolved]
  - Obstructive airways disorder [Recovered/Resolved]
  - Thrombosis [Recovered/Resolved]
